FAERS Safety Report 8919845 (Version 1)
Quarter: 2012Q4

REPORT INFORMATION
  Report Type: 
  Country: FR (occurrence: FR)
  Receive Date: 20121121
  Receipt Date: 20121121
  Transmission Date: 20130627
  Serious: Yes (Hospitalization)
  Sender: FDA-Public Use
  Company Number: FR-JNJFOC-20121106365

PATIENT
  Age: 65 Year
  Sex: Female

DRUGS (5)
  1. REMICADE [Suspect]
     Indication: RHEUMATOID ARTHRITIS
     Route: 042
     Dates: start: 2004, end: 20081114
  2. NOVATREX (METHOTREXATE) [Suspect]
     Indication: RHEUMATOID ARTHRITIS
     Route: 048
     Dates: end: 20090206
  3. SPECIAFOLDINE [Concomitant]
     Route: 065
     Dates: end: 20090223
  4. IMOVANE [Concomitant]
     Route: 065
  5. DEROXAT [Concomitant]
     Route: 065

REACTIONS (1)
  - Interstitial lung disease [Recovering/Resolving]
